FAERS Safety Report 8058509-8 (Version None)
Quarter: 2012Q1

REPORT INFORMATION
  Report Type: 
  Country: None (occurrence: None)
  Receive Date: 20120119
  Receipt Date: 20120119
  Transmission Date: 20120608
  Serious: No
  Sender: FDA-Public Use
  Company Number: None

PATIENT

DRUGS (1)
  1. AMLODIPINE BESYLATE AND BENAZEPRIL HCL [Suspect]
     Indication: BLOOD PRESSURE
     Dosage: 1  1 A DAY  OCT THRU NOV

REACTIONS (4)
  - MOVEMENT DISORDER [None]
  - PAIN IN EXTREMITY [None]
  - MYALGIA [None]
  - GAIT DISTURBANCE [None]
